FAERS Safety Report 9154999 (Version 3)
Quarter: 2013Q1

REPORT INFORMATION
  Report Type: Spontaneous
  Country: JP (occurrence: JP)
  Receive Date: 20130311
  Receipt Date: 20130325
  Transmission Date: 20140127
  Serious: Yes (Hospitalization)
  Sender: FDA-Public Use
  Company Number: JP-TEVA-389173ISR

PATIENT
  Age: 8 Year
  Sex: Female
  Weight: 37 kg

DRUGS (4)
  1. SAXIZON [Suspect]
     Indication: GASTROENTERITIS
     Route: 042
     Dates: start: 20130223, end: 20130223
  2. SAXIZON [Suspect]
     Indication: PNEUMONIA MYCOPLASMAL
  3. FOSFOMYCIN [Suspect]
     Indication: GASTROENTERITIS
     Route: 042
     Dates: start: 20130223, end: 20130223
  4. PERAPRIN [Suspect]
     Indication: VOMITING
     Route: 042
     Dates: start: 20130223, end: 20130223

REACTIONS (2)
  - Anaphylactic reaction [Recovered/Resolved]
  - Analgesic asthma syndrome [Recovered/Resolved]
